FAERS Safety Report 9060130 (Version 1)
Quarter: 2013Q1

REPORT INFORMATION
  Report Type: Report from Study
  Country: US (occurrence: US)
  Receive Date: 20130212
  Receipt Date: 20130212
  Transmission Date: 20140127
  Serious: Yes (Hospitalization, Other)
  Sender: FDA-Public Use
  Company Number: US-ABBOTT-13P-163-1045291-00

PATIENT
  Age: 49 None
  Sex: Male
  Weight: 148.91 kg

DRUGS (9)
  1. HUMIRA [Suspect]
     Indication: COLITIS ULCERATIVE
     Dates: start: 20121214, end: 201301
  2. BENACAR [Concomitant]
     Indication: PRODUCT USED FOR UNKNOWN INDICATION
  3. LOTREL [Concomitant]
     Indication: PRODUCT USED FOR UNKNOWN INDICATION
  4. LEXAPRO [Concomitant]
     Indication: PRODUCT USED FOR UNKNOWN INDICATION
  5. SIMVASTATIN [Concomitant]
     Indication: PRODUCT USED FOR UNKNOWN INDICATION
  6. PREDNISONE [Concomitant]
     Indication: PRODUCT USED FOR UNKNOWN INDICATION
  7. BYETTA [Concomitant]
     Indication: PRODUCT USED FOR UNKNOWN INDICATION
  8. ANDROGEL [Concomitant]
     Indication: PRODUCT USED FOR UNKNOWN INDICATION
  9. LANTUS [Concomitant]
     Indication: PRODUCT USED FOR UNKNOWN INDICATION

REACTIONS (7)
  - Haemoglobin decreased [Recovered/Resolved]
  - Dizziness [Unknown]
  - Haemoglobin decreased [Recovered/Resolved]
  - Haemoglobin abnormal [Recovered/Resolved]
  - Drug ineffective [Unknown]
  - Colitis ulcerative [Unknown]
  - Dizziness [Unknown]
